FAERS Safety Report 8446940-8 (Version None)
Quarter: 2012Q2

REPORT INFORMATION
  Report Type: 
  Country: None (occurrence: None)
  Receive Date: 20120619
  Receipt Date: 20120606
  Transmission Date: 20120825
  Serious: Yes (Other)
  Sender: FDA-Public Use
  Company Number: PK-RANBAXY-2012RR-57183

PATIENT
  Age: 40 Year
  Sex: Male

DRUGS (5)
  1. METOPROLOL SUCCINATE [Concomitant]
     Indication: PRODUCT USED FOR UNKNOWN INDICATION
     Route: 065
  2. ASPIRIN [Concomitant]
     Indication: PRODUCT USED FOR UNKNOWN INDICATION
     Route: 065
  3. ATORVASTATIN CALCIUM [Suspect]
     Indication: PRODUCT USED FOR UNKNOWN INDICATION
     Route: 065
  4. CLOPIDOGREL [Concomitant]
     Indication: PRODUCT USED FOR UNKNOWN INDICATION
     Route: 065
  5. LISINOPRIL [Concomitant]
     Indication: PRODUCT USED FOR UNKNOWN INDICATION
     Route: 065

REACTIONS (13)
  - HYPOCHOLESTEROLAEMIA [None]
  - NIGHTMARE [None]
  - INSOMNIA [None]
  - MEMORY IMPAIRMENT [None]
  - ATAXIA [None]
  - GAIT DISTURBANCE [None]
  - AGGRESSION [None]
  - FATIGUE [None]
  - SEXUAL DYSFUNCTION [None]
  - MUSCLE SPASMS [None]
  - ERECTILE DYSFUNCTION [None]
  - THINKING ABNORMAL [None]
  - PHOBIA [None]
